FAERS Safety Report 13824738 (Version 1)
Quarter: 2017Q3

REPORT INFORMATION
  Report Type: Spontaneous
  Country: US (occurrence: US)
  Receive Date: 20170801
  Receipt Date: 20170801
  Transmission Date: 20171127
  Serious: Yes (Hospitalization)
  Sender: FDA-Public Use
  Company Number: None

PATIENT
  Sex: Female
  Weight: 54 kg

DRUGS (5)
  1. B VITAMIN COMPLEX [Concomitant]
  2. EFFEXOR [Concomitant]
     Active Substance: VENLAFAXINE HYDROCHLORIDE
  3. SYNTHROID [Concomitant]
     Active Substance: LEVOTHYROXINE SODIUM
  4. MULTIVITAMIN [Concomitant]
     Active Substance: VITAMINS
  5. GEODON [Suspect]
     Active Substance: ZIPRASIDONE HYDROCHLORIDE\ZIPRASIDONE MESYLATE
     Indication: PSYCHOTIC DISORDER
     Dosage: ?          OTHER STRENGTH:UNKNOWN;QUANTITY:1 CAPSULE(S);??
     Route: 048

REACTIONS (3)
  - Anxiety [None]
  - Akathisia [None]
  - Memory impairment [None]

NARRATIVE: CASE EVENT DATE: 20070706
